FAERS Safety Report 8613892 (Version 2)
Quarter: 2014Q1

REPORT INFORMATION
  Report Type: Spontaneous
  Country: US (occurrence: US)
  Receive Date: 20120614
  Receipt Date: 20140108
  Transmission Date: 20141002
  Serious: Yes (Hospitalization, Disabling, Other)
  Sender: FDA-Public Use
  Company Number: US-ASTRAZENECA-2012SE36392

PATIENT
  Age: 10275 Day
  Sex: Male

DRUGS (9)
  1. NEXIUM [Suspect]
     Indication: DYSPEPSIA
     Dosage: SOMETIMES TWO DEPENDING ON HEARTBURN
     Route: 048
     Dates: start: 1999, end: 2011
  2. HYDROCODONE [Concomitant]
  3. METHADONE [Concomitant]
  4. CLONIDINE [Concomitant]
  5. METOPROLOL [Concomitant]
  6. MONORIDIL [Concomitant]
  7. NORVASC [Concomitant]
  8. CELLCEPT [Concomitant]
  9. PHENERGAN [Concomitant]

REACTIONS (9)
  - Convulsion [Unknown]
  - Cerebrovascular accident [Unknown]
  - Foot fracture [Unknown]
  - Hypertension [Unknown]
  - Renal failure [Unknown]
  - Pain in extremity [Unknown]
  - Osteoporosis [Unknown]
  - Impaired healing [Unknown]
  - Osteogenesis imperfecta [Unknown]
